FAERS Safety Report 4341418-5 (Version None)
Quarter: 2004Q2

REPORT INFORMATION
  Report Type: 
  Country: None (occurrence: None)
  Receive Date: 20040414
  Receipt Date: 20040407
  Transmission Date: 20050107
  Serious: Yes (Hospitalization)
  Sender: FDA-Public Use
  Company Number: 200301-0296

PATIENT
  Age: 25 Year
  Sex: Female

DRUGS (1)
  1. ACTIFED [Suspect]
     Dosage: 3 TABS DAILY FOR 3 DAYS, ORAL
     Route: 048
     Dates: start: 20021123, end: 20031127

REACTIONS (4)
  - CEREBRAL ISCHAEMIA [None]
  - CEREBROVASCULAR ACCIDENT [None]
  - REGRESSIVE BEHAVIOUR [None]
  - VISUAL DISTURBANCE [None]
